FAERS Safety Report 24962229 (Version 1)
Quarter: 2025Q1

REPORT INFORMATION
  Report Type: Spontaneous
  Country: US (occurrence: US)
  Receive Date: 20250212
  Receipt Date: 20250212
  Transmission Date: 20250409
  Serious: No
  Sender: PFIZER
  Company Number: US-PFIZER INC-202500030114

PATIENT
  Age: 52 Year
  Sex: Male

DRUGS (1)
  1. XELJANZ XR [Suspect]
     Active Substance: TOFACITINIB CITRATE
     Dosage: 11 MG, DAILY
     Route: 048
     Dates: start: 202205

REACTIONS (10)
  - Illness [Recovering/Resolving]
  - Influenza [Not Recovered/Not Resolved]
  - Respiratory tract congestion [Unknown]
  - Productive cough [Unknown]
  - Condition aggravated [Unknown]
  - Arthritis [Unknown]
  - Drug ineffective [Unknown]
  - Psoriasis [Unknown]
  - C-reactive protein increased [Unknown]
  - Red blood cell sedimentation rate increased [Unknown]
